FAERS Safety Report 4826010-8 (Version None)
Quarter: 2005Q4

REPORT INFORMATION
  Report Type: 
  Country: None (occurrence: None)
  Receive Date: 20051111
  Receipt Date: 20050621
  Transmission Date: 20060501
  Serious: Yes (Hospitalization, Other)
  Sender: FDA-Public Use
  Company Number: CA-MERCK-0506CAN00200

PATIENT
  Age: 47 Year
  Sex: Female

DRUGS (14)
  1. VIOXX [Suspect]
     Route: 048
     Dates: start: 20020501, end: 20040101
  2. VIOXX [Suspect]
     Route: 048
     Dates: start: 20020501, end: 20040101
  3. VIOXX [Suspect]
     Route: 048
     Dates: start: 20020501, end: 20040101
  4. AMITRIPTYLINE HYDROCHLORIDE [Concomitant]
     Route: 065
  5. AMITRIPTYLINE HYDROCHLORIDE [Concomitant]
     Route: 065
  6. ESTROGENS, CONJUGATED [Concomitant]
     Route: 065
  7. ESTROGENS, CONJUGATED [Concomitant]
     Route: 065
  8. ASPIRIN [Concomitant]
     Route: 065
  9. ISOSORBIDE DINITRATE [Concomitant]
     Indication: CHEST DISCOMFORT
     Route: 060
  10. ATENOLOL [Concomitant]
     Route: 065
  11. ATENOLOL [Concomitant]
     Route: 065
  12. CLOPIDOGREL BISULFATE [Concomitant]
     Route: 065
  13. OMEPRAZOLE MAGNESIUM [Concomitant]
     Route: 065
  14. KETOROLAC TROMETHAMINE [Concomitant]
     Route: 065

REACTIONS (12)
  - BRADYCARDIA [None]
  - CHEST DISCOMFORT [None]
  - CHEST PAIN [None]
  - DIZZINESS [None]
  - GASTROOESOPHAGEAL REFLUX DISEASE [None]
  - HEADACHE [None]
  - HYPOTENSION [None]
  - MYOCARDIAL INFARCTION [None]
  - NON-CARDIAC CHEST PAIN [None]
  - PALPITATIONS [None]
  - STOMACH DISCOMFORT [None]
  - SYNCOPE [None]
